FAERS Safety Report 25200611 (Version 2)
Quarter: 2025Q2

REPORT INFORMATION
  Report Type: Spontaneous
  Country: US (occurrence: US)
  Receive Date: 20250415
  Receipt Date: 20250521
  Transmission Date: 20250717
  Serious: Yes (Other)
  Sender: BAYER HEALTHCARE PHARMACEUTICALS INC.
  Company Number: US-BAYER-2025A047833

PATIENT
  Age: 60 Year
  Sex: Male

DRUGS (3)
  1. KERENDIA [Suspect]
     Active Substance: FINERENONE
     Indication: Glomerular filtration rate
     Dates: end: 20250406
  2. HYDROCHLOROTHIAZIDE [Concomitant]
     Active Substance: HYDROCHLOROTHIAZIDE
     Indication: Hypertension
  3. VITAMIN D [Concomitant]
     Active Substance: VITAMIN D NOS
     Indication: Vitamin D decreased
     Dates: start: 2022

REACTIONS (5)
  - Urinary retention [Recovering/Resolving]
  - Glomerular filtration rate decreased [None]
  - Oliguria [Recovered/Resolved]
  - Hypotension [None]
  - Product dose omission in error [None]

NARRATIVE: CASE EVENT DATE: 20250101
